FAERS Safety Report 6027826-5 (Version None)
Quarter: 2009Q1

REPORT INFORMATION
  Report Type: 
  Country: None (occurrence: None)
  Receive Date: 20090105
  Receipt Date: 20090102
  Transmission Date: 20090719
  Serious: Yes (Other)
  Sender: FDA-Public Use
  Company Number: NL-ROXANE LABORATORIES, INC.-2008-RO-00470RO

PATIENT
  Age: 62 Year
  Sex: Female

DRUGS (1)
  1. ZOLPIDEM [Suspect]

REACTIONS (2)
  - PARASOMNIA [None]
  - SOMNAMBULISM [None]
